FAERS Safety Report 15453697 (Version 4)
Quarter: 2020Q2

REPORT INFORMATION
  Report Type: Spontaneous
  Country: US (occurrence: US)
  Receive Date: 20181001
  Receipt Date: 20200429
  Transmission Date: 20200713
  Serious: Yes (Other)
  Sender: FDA-Public Use
  Company Number: US-PFIZER INC-2018395559

PATIENT
  Age: 24 Year
  Sex: Male
  Weight: 76 kg

DRUGS (1)
  1. BENEFIX [Suspect]
     Active Substance: COAGULATION FACTOR IX RECOMBINANT HUMAN\ISOPROPYL ALCOHOL
     Indication: HAEMORRHAGE
     Dosage: 7600 UNITS (+/-10%) = 100 UNITS/KG DAILY X 1 ON DEMAND

REACTIONS (1)
  - Haemorrhage [Unknown]
